FAERS Safety Report 26100218 (Version 1)
Quarter: 2025Q4

REPORT INFORMATION
  Report Type: Report from Study
  Country: AU (occurrence: AU)
  Receive Date: 20251128
  Receipt Date: 20251128
  Transmission Date: 20260117
  Serious: Yes (Other)
  Sender: ROCHE
  Company Number: AU-BoehringerIngelheim-2025-BI-109048

PATIENT

DRUGS (2)
  1. ALTEPLASE [Suspect]
     Active Substance: ALTEPLASE
     Indication: Pleural infection
     Route: 034
  2. DEOXYRIBONUCLIEC ACID [Concomitant]
     Active Substance: DEOXYRIBONUCLIEC ACID
     Indication: Pleural infection

REACTIONS (3)
  - Haemothorax [Unknown]
  - Off label use [Unknown]
  - Incorrect route of product administration [Unknown]
